FAERS Safety Report 18442230 (Version 1)
Quarter: 2020Q4

REPORT INFORMATION
  Report Type: Spontaneous
  Country: US (occurrence: US)
  Receive Date: 20201029
  Receipt Date: 20201029
  Transmission Date: 20210114
  Serious: Yes (Other)
  Sender: FDA-Public Use
  Company Number: US-UNICHEM PHARMACEUTICALS (USA) INC-UCM201911-000689

PATIENT
  Age: 33 Year
  Sex: Female
  Weight: 76.2 kg

DRUGS (1)
  1. LAMOTRIGINE. [Suspect]
     Active Substance: LAMOTRIGINE
     Indication: PARTIAL SEIZURES
     Dates: start: 20190702, end: 20190902

REACTIONS (3)
  - Alopecia [Recovered/Resolved]
  - Seizure [Recovered/Resolved]
  - Hallucinations, mixed [Recovered/Resolved]
